FAERS Safety Report 22265684 (Version 1)
Quarter: 2023Q2

REPORT INFORMATION
  Report Type: Spontaneous
  Country: GB (occurrence: GB)
  Receive Date: 20230428
  Receipt Date: 20230428
  Transmission Date: 20230722
  Serious: Yes (Disabling, Other)
  Sender: FDA-Public Use
  Company Number: GB-BAYER-2023A057701

PATIENT
  Age: 40 Year
  Sex: Male

DRUGS (1)
  1. CIPROFLOXACIN [Suspect]
     Active Substance: CIPROFLOXACIN
     Indication: Prostatitis
     Dosage: UNK
     Dates: start: 2016

REACTIONS (22)
  - Neuropathy peripheral [None]
  - Insomnia [Recovering/Resolving]
  - Retinal injury [None]
  - Gait disturbance [Recovering/Resolving]
  - Nausea [None]
  - Illness [None]
  - Myoclonus [None]
  - Tendon injury [None]
  - Vitreous floaters [None]
  - Gastrointestinal disorder [None]
  - Nail discolouration [None]
  - Heart rate increased [None]
  - Palpitations [None]
  - Heart rate irregular [None]
  - Dyspnoea [Recovering/Resolving]
  - Muscular weakness [None]
  - Arthralgia [None]
  - Skin injury [None]
  - Vasculitis [None]
  - Tinnitus [None]
  - Photosensitivity reaction [None]
  - Drug ineffective [None]
